FAERS Safety Report 8145197-5 (Version None)
Quarter: 2012Q1

REPORT INFORMATION
  Report Type: 
  Country: None (occurrence: None)
  Receive Date: 20120217
  Receipt Date: 20120215
  Transmission Date: 20120608
  Serious: Yes (Life-Threatening, Hospitalization, Other)
  Sender: FDA-Public Use
  Company Number: PHHY2010CA25991

PATIENT
  Sex: Male

DRUGS (1)
  1. CLOZARIL [Suspect]
     Indication: SCHIZOPHRENIA
     Dosage: 600 MG, QD
     Dates: start: 20090303

REACTIONS (3)
  - BLOOD TEST ABNORMAL [None]
  - NEOPLASM MALIGNANT [None]
  - LYMPHOMA [None]
